FAERS Safety Report 21955959 (Version 1)
Quarter: 2023Q1

REPORT INFORMATION
  Report Type: Spontaneous
  Country: US (occurrence: US)
  Receive Date: 20230206
  Receipt Date: 20230206
  Transmission Date: 20230418
  Serious: Yes (Life-Threatening, Hospitalization, Other)
  Sender: FDA-Public Use
  Company Number: US-AMGEN-USASP2023015049

PATIENT
  Age: 22 Year
  Sex: Female

DRUGS (1)
  1. RITUXIMAB [Suspect]
     Active Substance: RITUXIMAB
     Indication: Granulomatosis with polyangiitis
     Dosage: UNK
     Route: 065

REACTIONS (7)
  - Hyperammonaemic encephalopathy [Recovered/Resolved]
  - Arthritis bacterial [Unknown]
  - Pericardial effusion [Unknown]
  - Pelvic abscess [Unknown]
  - Coma [Unknown]
  - Shock [Unknown]
  - Ureaplasma infection [Unknown]
